FAERS Safety Report 9482554 (Version 1)
Quarter: 2013Q3

REPORT INFORMATION
  Report Type: Spontaneous
  Country: US (occurrence: US)
  Receive Date: 20130828
  Receipt Date: 20130828
  Transmission Date: 20140515
  Serious: No
  Sender: FDA-Public Use
  Company Number: US-SANOFI-AVENTIS-2012SA069948

PATIENT
  Age: 66 Year
  Sex: Male
  Weight: 84 kg

DRUGS (7)
  1. ELIGARD [Suspect]
     Indication: PROSTATE CANCER
     Route: 058
     Dates: start: 20120618, end: 20120618
  2. ELIGARD [Suspect]
     Indication: PROSTATE CANCER
     Route: 058
     Dates: start: 20120112, end: 20120112
  3. PRAVASTATIN [Concomitant]
  4. CASODEX [Concomitant]
     Indication: PROSTATE CANCER
     Dates: start: 20111128
  5. HUMALOG [Concomitant]
     Indication: DIABETES MELLITUS
  6. KENALOG [Concomitant]
     Indication: BLADDER NECK OBSTRUCTION
  7. ACETYLSALICYLIC ACID [Concomitant]

REACTIONS (2)
  - Muscle spasms [Unknown]
  - Insomnia [Unknown]
